FAERS Safety Report 14187746 (Version 1)
Quarter: 2017Q4

REPORT INFORMATION
  Report Type: Spontaneous
  Country: US (occurrence: None)
  Receive Date: 20171114
  Receipt Date: 20171114
  Transmission Date: 20180321
  Serious: Yes (Other)
  Sender: FDA-Public Use
  Company Number: None

PATIENT
  Age: 44 Year
  Sex: Female
  Weight: 74.84 kg

DRUGS (2)
  1. BAYER ASPIRIN [Suspect]
     Active Substance: ASPIRIN
     Indication: ARRHYTHMIA
     Dosage: 1 PILL
     Route: 048
     Dates: start: 20171101, end: 20171101
  2. MOTRIN [Concomitant]
     Active Substance: IBUPROFEN

REACTIONS (3)
  - Body mass index decreased [None]
  - Physical examination abnormal [None]
  - Hypovolaemia [None]

NARRATIVE: CASE EVENT DATE: 20171101
